FAERS Safety Report 7375191-3 (Version None)
Quarter: 2011Q1

REPORT INFORMATION
  Report Type: 
  Country: None (occurrence: None)
  Receive Date: 20110315
  Receipt Date: 20110304
  Transmission Date: 20110831
  Serious: Yes (Death)
  Sender: FDA-Public Use
  Company Number: ALA_01493_2011

PATIENT
  Sex: Female

DRUGS (3)
  1. REGLAN [Suspect]
     Indication: PRODUCT USED FOR UNKNOWN INDICATION
     Dosage: (DF ORAL) ; (DF ORAL) ; (DF ORAL)
     Route: 048
     Dates: start: 20010701, end: 20040201
  2. REGLAN [Suspect]
     Indication: PRODUCT USED FOR UNKNOWN INDICATION
     Dosage: (DF ORAL) ; (DF ORAL) ; (DF ORAL)
     Route: 048
     Dates: start: 20040301, end: 20070401
  3. REGLAN [Suspect]
     Indication: PRODUCT USED FOR UNKNOWN INDICATION
     Dosage: (DF ORAL) ; (DF ORAL) ; (DF ORAL)
     Route: 048
     Dates: start: 20000101, end: 20010401

REACTIONS (4)
  - TARDIVE DYSKINESIA [None]
  - ECONOMIC PROBLEM [None]
  - EMOTIONAL DISORDER [None]
  - EXTRAPYRAMIDAL DISORDER [None]
